FAERS Safety Report 25251910 (Version 2)
Quarter: 2025Q4

REPORT INFORMATION
  Report Type: Report from Study
  Country: IN (occurrence: IN)
  Receive Date: 20250429
  Receipt Date: 20251014
  Transmission Date: 20260117
  Serious: Yes (Death, Hospitalization)
  Sender: NOVARTIS
  Company Number: IN-002147023-NVSC2025IN069426

PATIENT
  Age: 70 Year
  Sex: Male

DRUGS (1)
  1. INCLISIRAN [Suspect]
     Active Substance: INCLISIRAN
     Indication: Low density lipoprotein increased
     Dosage: 284 MG, OTHER (DOAGE REGIMEN IS 0 DAY- 3RD MONTH- 6TH MONTH - 6TH MONTH AND SO ON. PATIENT HAS TAKEN
     Route: 058
     Dates: start: 20250403

REACTIONS (4)
  - Head injury [Fatal]
  - Lower respiratory tract infection [Unknown]
  - Dyspnoea [Unknown]
  - Urinary tract infection [Unknown]

NARRATIVE: CASE EVENT DATE: 20250401
